FAERS Safety Report 24682286 (Version 1)
Quarter: 2024Q4

REPORT INFORMATION
  Report Type: Spontaneous
  Country: US (occurrence: US)
  Receive Date: 20241130
  Receipt Date: 20241130
  Transmission Date: 20250114
  Serious: Yes (Other)
  Sender: ACCORD
  Company Number: US-MLMSERVICE-20241115-PI257915-00162-1

PATIENT
  Age: 48 Year
  Sex: Male

DRUGS (1)
  1. FUROSEMIDE [Suspect]
     Active Substance: FUROSEMIDE
     Indication: Hypervolaemia
     Route: 042

REACTIONS (2)
  - Gout [Recovered/Resolved]
  - Sickle cell anaemia with crisis [Recovering/Resolving]
